FAERS Safety Report 24317863 (Version 2)
Quarter: 2024Q3

REPORT INFORMATION
  Report Type: Spontaneous
  Country: TW (occurrence: TW)
  Receive Date: 20240913
  Receipt Date: 20240918
  Transmission Date: 20241016
  Serious: Yes (Other)
  Sender: MERCK
  Company Number: TW-009507513-2408TWN005967

PATIENT
  Age: 65 Year
  Sex: Male

DRUGS (3)
  1. PEMBROLIZUMAB [Suspect]
     Active Substance: PEMBROLIZUMAB
     Indication: Squamous cell carcinoma
     Dosage: 200 MILLIGRAM
     Dates: start: 20221121, end: 20221228
  2. TAXOTERE [Suspect]
     Active Substance: DOCETAXEL
     Indication: Squamous cell carcinoma
     Dosage: 30 MILLIGRAM/SQ. METER
     Dates: start: 20221121, end: 20221228
  3. CISPLATIN [Suspect]
     Active Substance: CISPLATIN
     Indication: Squamous cell carcinoma
     Dosage: 60 MILLIGRAM/SQ. METER
     Dates: start: 20221121, end: 20221228

REACTIONS (6)
  - Osteonecrosis [Unknown]
  - Klebsiella infection [Unknown]
  - Catheter site infection [Unknown]
  - Haemangioma of bone [Unknown]
  - Vascular anastomosis [Unknown]
  - Off label use [Unknown]
